FAERS Safety Report 8816916 (Version 1)
Quarter: 2012Q4

REPORT INFORMATION
  Report Type: Spontaneous
  Country: US (occurrence: None)
  Receive Date: 20121002
  Receipt Date: 20121002
  Transmission Date: 20130627
  Serious: Yes (Other)
  Sender: FDA-Public Use
  Company Number: None

PATIENT
  Age: 47 Year
  Sex: Female
  Weight: 62.6 kg

DRUGS (1)
  1. LEVOFLOXACIN [Suspect]
     Indication: URINARY TRACT INFECTION
     Dosage: 500 mg Daily po
     Route: 048
     Dates: start: 20120927, end: 20120928

REACTIONS (8)
  - Malaise [None]
  - Fatigue [None]
  - Muscular weakness [None]
  - Visual acuity reduced [None]
  - Mental impairment [None]
  - Disorientation [None]
  - Nausea [None]
  - Feeling abnormal [None]
